FAERS Safety Report 4642229-3 (Version None)
Quarter: 2005Q2

REPORT INFORMATION
  Report Type: 
  Country: None (occurrence: None)
  Receive Date: 20050422
  Receipt Date: 20050411
  Transmission Date: 20051028
  Serious: Yes (Hospitalization)
  Sender: FDA-Public Use
  Company Number: FR-BRISTOL-MYERS SQUIBB COMPANY-12929907

PATIENT
  Age: 64 Year
  Sex: Female
  Weight: 64 kg

DRUGS (7)
  1. AMIKLIN INJ 1 G [Suspect]
     Indication: CELLULITIS
     Route: 042
     Dates: start: 20050201, end: 20050210
  2. AMIKLIN INJ 1 G [Suspect]
     Indication: ABSCESS
     Route: 042
     Dates: start: 20050201, end: 20050210
  3. PERFALGAN IV [Suspect]
     Indication: ABDOMINAL PAIN
     Route: 042
     Dates: start: 20050201, end: 20050217
  4. TIMENTIN [Suspect]
     Indication: CELLULITIS
     Route: 042
     Dates: start: 20050201, end: 20050210
  5. LOVENOX [Suspect]
     Route: 058
     Dates: start: 20050201, end: 20050209
  6. RANIPLEX [Suspect]
     Route: 042
     Dates: start: 20050201, end: 20050209
  7. TRANXENE [Suspect]
     Indication: ANXIETY
     Route: 042
     Dates: start: 20050201, end: 20050221

REACTIONS (1)
  - THROMBOCYTOPENIA [None]
